FAERS Safety Report 15725970 (Version 1)
Quarter: 2018Q4

REPORT INFORMATION
  Report Type: Report from Study
  Country: DE (occurrence: DE)
  Receive Date: 20181216
  Receipt Date: 20181216
  Transmission Date: 20190205
  Serious: Yes (Other)
  Sender: FDA-Public Use
  Company Number: DE-TEVA-490556GER

PATIENT
  Age: 30 Year
  Sex: Female

DRUGS (4)
  1. COPAXONE [Suspect]
     Active Substance: GLATIRAMER ACETATE
     Indication: MULTIPLE SCLEROSIS
     Dosage: 20 MILLIGRAM DAILY;
     Dates: start: 20140206, end: 20140623
  2. CLOMIFENE [Concomitant]
     Active Substance: CLOMIPHENE
     Indication: ANOVULATORY CYCLE
     Dosage: 50 MILLIGRAM DAILY;
     Route: 048
     Dates: start: 20140507, end: 20140511
  3. UTROGEST [Concomitant]
     Active Substance: PROGESTERONE
     Indication: LUTEINISING HORMONE DEFICIENCY
     Dosage: 100 MILLIGRAM DAILY;
     Route: 067
     Dates: start: 20140605, end: 20140715
  4. PREDALON [Concomitant]
     Active Substance: CHORIOGONADOTROPIN ALFA
     Indication: OVULATION INDUCTION
     Dosage: ONCE
     Route: 030
     Dates: start: 20140603, end: 20140603

REACTIONS (2)
  - Abortion missed [Recovered/Resolved]
  - Maternal exposure during pregnancy [Unknown]

NARRATIVE: CASE EVENT DATE: 20140715
